FAERS Safety Report 8099178-0 (Version None)
Quarter: 2012Q1

REPORT INFORMATION
  Report Type: 
  Country: None (occurrence: None)
  Receive Date: 20120129
  Receipt Date: 20111005
  Transmission Date: 20120608
  Serious: No
  Sender: FDA-Public Use
  Company Number: US-ABBOTT-11P-163-0860892-00

PATIENT
  Sex: Female
  Weight: 95.34 kg

DRUGS (4)
  1. METOPROLOL TARTRATE [Concomitant]
     Indication: HYPERTENSION
  2. UNKNOWN HAIR DYE [Suspect]
     Indication: HAIR COLOUR CHANGES
     Dates: start: 20110701
  3. ASACOL [Concomitant]
     Indication: COLITIS ULCERATIVE
  4. HUMIRA [Suspect]
     Indication: COLITIS ULCERATIVE
     Route: 058
     Dates: start: 20110301

REACTIONS (2)
  - ALOPECIA [None]
  - PRURITUS [None]
